FAERS Safety Report 13265427 (Version 2)
Quarter: 2017Q1

REPORT INFORMATION
  Report Type: Spontaneous
  Country: US (occurrence: US)
  Receive Date: 20170223
  Receipt Date: 20170223
  Transmission Date: 20170428
  Serious: Yes (Other)
  Sender: FDA-Public Use
  Company Number: US-BRACCO-013723

PATIENT
  Age: 45 Year
  Sex: Female
  Weight: 59 kg

DRUGS (1)
  1. ISOVUE 300 [Suspect]
     Active Substance: IOPAMIDOL
     Indication: COMPUTERISED TOMOGRAM
     Route: 042
     Dates: start: 20160621, end: 20160621

REACTIONS (8)
  - Flushing [Recovered/Resolved]
  - Cough [Recovered/Resolved]
  - Bronchospasm [Recovered/Resolved]
  - Pallor [Recovered/Resolved]
  - Chest discomfort [Recovered/Resolved]
  - Dysphonia [Recovered/Resolved]
  - Throat irritation [Recovered/Resolved]
  - Headache [Recovered/Resolved]

NARRATIVE: CASE EVENT DATE: 20160621
